FAERS Safety Report 7536324-9 (Version None)
Quarter: 2011Q2

REPORT INFORMATION
  Report Type: 
  Country: None (occurrence: None)
  Receive Date: 20110602
  Receipt Date: 20110520
  Transmission Date: 20111010
  Serious: Yes (Other)
  Sender: FDA-Public Use
  Company Number: FR-1186367

PATIENT
  Age: 4 Year
  Sex: Male
  Weight: 15 kg

DRUGS (1)
  1. CYCLOPENTOLATE HCL [Suspect]
     Indication: MYDRIASIS
     Dosage: A FEW DROPS OPHTHALMIC
     Route: 047
     Dates: start: 20110331, end: 20110331

REACTIONS (3)
  - HALLUCINATIONS, MIXED [None]
  - AMNESIA [None]
  - ABDOMINAL PAIN [None]
